FAERS Safety Report 10208534 (Version 1)
Quarter: 2014Q2

REPORT INFORMATION
  Report Type: Spontaneous
  Country: GB (occurrence: GB)
  Receive Date: 20140530
  Receipt Date: 20140530
  Transmission Date: 20141212
  Serious: Yes (Other)
  Sender: FDA-Public Use
  Company Number: GB-ACTAVISPR-2014-11595

PATIENT
  Age: 46 Year
  Sex: Female

DRUGS (2)
  1. ROPINIROLE HYDROCHLORIDE (UNKNOWN) [Suspect]
     Indication: PARKINSON^S DISEASE
     Dosage: 15 MG, DAILY
     Route: 065
  2. LEVODOPA [Suspect]
     Indication: PARKINSON^S DISEASE
     Dosage: 150 MG, DAILY
     Route: 065

REACTIONS (1)
  - Dyskinesia [Recovered/Resolved]
